FAERS Safety Report 11785571 (Version 1)
Quarter: 2015Q4

REPORT INFORMATION
  Report Type: Report from Study
  Country: LB (occurrence: LB)
  Receive Date: 20151130
  Receipt Date: 20151130
  Transmission Date: 20160305
  Serious: Yes (Death)
  Sender: FDA-Public Use
  Company Number: PHHY2015LB155673

PATIENT
  Age: 73 Year
  Sex: Female

DRUGS (1)
  1. EXJADE [Suspect]
     Active Substance: DEFERASIROX
     Indication: THALASSAEMIA
     Dosage: 1000 MG, QD
     Route: 048

REACTIONS (2)
  - Cardiac failure congestive [Fatal]
  - Fluid retention [Fatal]

NARRATIVE: CASE EVENT DATE: 20151029
